FAERS Safety Report 6619818-X (Version None)
Quarter: 2010Q1

REPORT INFORMATION
  Report Type: 
  Country: None (occurrence: None)
  Receive Date: 20100309
  Receipt Date: 20100305
  Transmission Date: 20100710
  Serious: Yes (Death, Hospitalization, Other)
  Sender: FDA-Public Use
  Company Number: PHHY2009AU51430

PATIENT
  Sex: Female

DRUGS (4)
  1. CLOZARIL [Suspect]
     Dosage: 250 MG, 100 MG MANE 150 MG NOCTE
     Dates: start: 20020319
  2. ATENOLOL [Concomitant]
     Indication: TACHYCARDIA
     Dosage: UNK
     Route: 048
     Dates: start: 20090714
  3. ESTRADIOL AND NORETHINDRONE [Concomitant]
     Dosage: MANE
     Route: 048
  4. PANTOPRAZOLE [Concomitant]
     Dosage: 40 MG MANE
     Route: 048

REACTIONS (6)
  - AGGRESSION [None]
  - AGITATION [None]
  - DELIRIUM [None]
  - FALL [None]
  - INFECTION [None]
  - SYNCOPE [None]
